FAERS Safety Report 6986454-5 (Version None)
Quarter: 2010Q3

REPORT INFORMATION
  Report Type: 
  Country: None (occurrence: None)
  Receive Date: 20100913
  Receipt Date: 20100908
  Transmission Date: 20110219
  Serious: Yes (Other)
  Sender: FDA-Public Use
  Company Number: 018336

PATIENT
  Age: 35 Year
  Sex: Female

DRUGS (7)
  1. VIMPAT [Suspect]
     Indication: EPILEPSY
     Dosage: (50 MG ORAL)
     Route: 048
     Dates: start: 20100501, end: 20100101
  2. VIMPAT [Suspect]
     Indication: EPILEPSY
     Dosage: (50 MG ORAL)
     Route: 048
     Dates: start: 20100101, end: 20100907
  3. VIMPAT [Suspect]
     Indication: EPILEPSY
     Dosage: (50 MG ORAL)
     Route: 048
     Dates: start: 20100907
  4. LAMICTAL [Concomitant]
  5. DEPAKENE [Concomitant]
  6. RIVOTRIL [Concomitant]
  7. URBANYL [Concomitant]

REACTIONS (2)
  - INTENTIONAL SELF-INJURY [None]
  - SUICIDAL IDEATION [None]
